FAERS Safety Report 17756578 (Version 2)
Quarter: 2020Q3

REPORT INFORMATION
  Report Type: Report from Study
  Country: IE (occurrence: IE)
  Receive Date: 20200507
  Receipt Date: 20200708
  Transmission Date: 20201102
  Serious: Yes (Other)
  Sender: FDA-Public Use
  Company Number: IE-BRISTOL-MYERS SQUIBB COMPANY-BMS-2019-116351

PATIENT
  Age: 58 Year
  Sex: Female

DRUGS (2)
  1. MELFEN [IBUPROFEN] [Concomitant]
     Indication: MUSCLE STRAIN
     Dosage: 1 TAB, TID
     Route: 065
  2. NIVOLUMAB [Suspect]
     Active Substance: NIVOLUMAB
     Indication: LUNG CARCINOMA CELL TYPE UNSPECIFIED STAGE II
     Dosage: UNK UNK, QMO
     Route: 065
     Dates: start: 20191113

REACTIONS (4)
  - Decreased appetite [Recovered/Resolved]
  - Lower respiratory tract infection [Recovering/Resolving]
  - Fatigue [Not Recovered/Not Resolved]
  - Pulmonary oedema [Recovered/Resolved]

NARRATIVE: CASE EVENT DATE: 20200108
